FAERS Safety Report 16106372 (Version 1)
Quarter: 2019Q1

REPORT INFORMATION
  Report Type: Spontaneous
  Country: US (occurrence: US)
  Receive Date: 20190322
  Receipt Date: 20190322
  Transmission Date: 20190418
  Serious: No
  Sender: FDA-Public Use
  Company Number: US-ENDO PHARMACEUTICALS INC-2018-036044

PATIENT
  Sex: Male

DRUGS (3)
  1. AVEED [Suspect]
     Active Substance: TESTOSTERONE UNDECANOATE
     Dosage: UNK, RECEIVED INJECTION AT 4 WEEKS
     Route: 030
  2. AVEED [Suspect]
     Active Substance: TESTOSTERONE UNDECANOATE
     Dosage: UNK, RECEIVED INJECTION AT ZERO WEEKS
     Route: 030
  3. AVEED [Suspect]
     Active Substance: TESTOSTERONE UNDECANOATE
     Indication: PRODUCT USED FOR UNKNOWN INDICATION
     Dosage: UNK, RECEIVED INJECTION EVERY 10 WEEKS
     Route: 030

REACTIONS (2)
  - Blood testosterone decreased [Unknown]
  - Product dose omission [Recovered/Resolved]

NARRATIVE: CASE EVENT DATE: 201710
